FAERS Safety Report 15018564 (Version 1)
Quarter: 2018Q2

REPORT INFORMATION
  Report Type: Spontaneous
  Country: JP (occurrence: JP)
  Receive Date: 20180615
  Receipt Date: 20180615
  Transmission Date: 20180711
  Serious: Yes (Life-Threatening, Hospitalization)
  Sender: FDA-Public Use
  Company Number: JP-ANIPHARMA-2018-JP-000093

PATIENT
  Age: 70 Year
  Sex: Male

DRUGS (2)
  1. CASODEX [Suspect]
     Active Substance: BICALUTAMIDE
     Indication: PROSTATE CANCER
     Dosage: 80 MG QD
     Route: 048
     Dates: start: 20180424, end: 20180424
  2. ZOLADEX [Suspect]
     Active Substance: GOSERELIN ACETATE
     Dosage: 3.6 MG Q4WK
     Route: 058
     Dates: start: 20180424, end: 20180524

REACTIONS (4)
  - Fall [Unknown]
  - Coma [Recovered/Resolved]
  - Hyperglycaemia [Recovering/Resolving]
  - Back pain [Recovering/Resolving]

NARRATIVE: CASE EVENT DATE: 20180424
